FAERS Safety Report 9186592 (Version 3)
Quarter: 2013Q4

REPORT INFORMATION
  Report Type: Report from Study
  Country: BE (occurrence: BE)
  Receive Date: 20130325
  Receipt Date: 20131221
  Transmission Date: 20140711
  Serious: Yes (Hospitalization)
  Sender: FDA-Public Use
  Company Number: PHHO2013BE003883

PATIENT
  Sex: 0

DRUGS (6)
  1. ACZ885 [Suspect]
     Indication: CARDIOVASCULAR EVENT PROPHYLAXIS
     Dosage: 300 MG, UNK
     Route: 058
     Dates: start: 20120731
  2. AUGMENTIN [Concomitant]
     Indication: ANTIBIOTIC THERAPY
     Dosage: 875 MG, QD
     Dates: start: 20121028, end: 20121107
  3. AUGMENTIN [Concomitant]
     Indication: ACCIDENT
     Dosage: 875 MG, QD
     Dates: start: 20130205
  4. PLAVIX [Concomitant]
     Indication: PROPHYLAXIS
     Dosage: 75 MG, QD
     Dates: start: 20080214
  5. ASAFLOW [Concomitant]
     Indication: PROPHYLAXIS
     Dosage: 80 MG, QD
     Dates: start: 20080214
  6. COVERSYL PLUS [Concomitant]
     Indication: HYPERTENSION
     Dosage: 5 MG, QD
     Dates: start: 20081105

REACTIONS (1)
  - Asthma [Recovered/Resolved with Sequelae]
